FAERS Safety Report 24795598 (Version 1)
Quarter: 2025Q1

REPORT INFORMATION
  Report Type: Spontaneous
  Country: US (occurrence: US)
  Receive Date: 20250101
  Receipt Date: 20250101
  Transmission Date: 20250409
  Serious: Yes (Hospitalization)
  Sender: BRISTOL-MYERS SQUIBB COMPANY
  Company Number: US-BRISTOL-MYERS SQUIBB COMPANY-2024-198882

PATIENT
  Age: 67 Year
  Sex: Female

DRUGS (1)
  1. REVLIMID [Suspect]
     Active Substance: LENALIDOMIDE
     Indication: Follicle centre lymphoma diffuse small cell lymphoma
     Route: 048

REACTIONS (4)
  - Cardiac disorder [Unknown]
  - Haemoglobin decreased [Unknown]
  - Heart rate increased [Unknown]
  - Ageusia [Unknown]
